FAERS Safety Report 25947877 (Version 1)
Quarter: 2025Q4

REPORT INFORMATION
  Report Type: Spontaneous
  Country: US (occurrence: None)
  Receive Date: 20251021
  Receipt Date: 20251021
  Transmission Date: 20260119
  Serious: Yes (Other)
  Sender: FDA-CTU
  Company Number: None

PATIENT
  Age: 4 Month
  Sex: Female
  Weight: 6.75 kg

DRUGS (1)
  1. BEYFORTUS [Suspect]
     Active Substance: NIRSEVIMAB-ALIP
     Dosage: OTHER FREQUENCY : ONCE;?
     Route: 030

REACTIONS (2)
  - Urticaria [None]
  - Post vaccination syndrome [None]

NARRATIVE: CASE EVENT DATE: 20251010
